FAERS Safety Report 7725425-8 (Version None)
Quarter: 2011Q3

REPORT INFORMATION
  Report Type: 
  Country: None (occurrence: None)
  Receive Date: 20110902
  Receipt Date: 20110823
  Transmission Date: 20111222
  Serious: Yes (Other)
  Sender: FDA-Public Use
  Company Number: US-RANBAXY-2011US-47137

PATIENT

DRUGS (1)
  1. LISINOPRIL [Suspect]
     Indication: PRODUCT USED FOR UNKNOWN INDICATION
     Dosage: UNK, UNK
     Route: 065
     Dates: start: 20100201, end: 20100401

REACTIONS (7)
  - DIZZINESS [None]
  - COUGH [None]
  - CHOKING [None]
  - BALANCE DISORDER [None]
  - OROPHARYNGEAL PAIN [None]
  - DYSPHONIA [None]
  - DRY THROAT [None]
